FAERS Safety Report 5988681-2 (Version None)
Quarter: 2008Q4

REPORT INFORMATION
  Report Type: 
  Country: None (occurrence: None)
  Receive Date: 20081210
  Receipt Date: 20081201
  Transmission Date: 20090506
  Serious: Yes (Other)
  Sender: FDA-Public Use
  Company Number: PHEH2008US09369

PATIENT
  Sex: Female
  Weight: 85.714 kg

DRUGS (5)
  1. ZOMETA [Suspect]
     Indication: METASTASES TO BONE
     Dosage: 4 MG, Q2MO
     Dates: start: 20030408
  2. CALCIUM [Concomitant]
     Dosage: 3 TIMES PER WEEK
     Route: 048
  3. LORAZEPAM [Concomitant]
     Dosage: 1 MG, QHS
     Route: 048
  4. DEXAMETHASONE [Concomitant]
     Dosage: TAPERING DOSE
     Route: 048
  5. HYDROCODONE BITARTRATE [Concomitant]

REACTIONS (1)
  - BONE FORMATION INCREASED [None]
